FAERS Safety Report 5870479-7 (Version None)
Quarter: 2008Q3

REPORT INFORMATION
  Report Type: 
  Country: None (occurrence: None)
  Receive Date: 20080904
  Receipt Date: 20080616
  Transmission Date: 20090109
  Serious: No
  Sender: FDA-Public Use
  Company Number: US-BRISTOL-MYERS SQUIBB COMPANY-14229678

PATIENT
  Age: 67 Year
  Sex: Male
  Weight: 98 kg

DRUGS (15)
  1. DEFINITY [Suspect]
     Dosage: (DEFINITY .8CC DILUTED IN 9.2CC OF BACTERIOSTATIC SALINE TO EQUAL 10CC).
  2. CHANTIX [Concomitant]
  3. DIOVAN [Concomitant]
  4. COREG [Concomitant]
  5. PLAVIX [Concomitant]
  6. SIMVASTATIN [Concomitant]
  7. ALBUTEROL [Concomitant]
  8. HYDROCHLOROTHIAZIDE [Concomitant]
  9. ASPIRIN [Concomitant]
  10. NORVASC [Concomitant]
  11. ZANTAC [Concomitant]
  12. ZYRTEC [Concomitant]
  13. CITALOPRAM HYDROBROMIDE [Concomitant]
  14. GLUCOSAMINE [Concomitant]
  15. CENTRUM SILVER [Concomitant]

REACTIONS (1)
  - BACK PAIN [None]
